FAERS Safety Report 25997336 (Version 2)
Quarter: 2025Q4

REPORT INFORMATION
  Report Type: Spontaneous
  Country: EU (occurrence: EU)
  Receive Date: 20251104
  Receipt Date: 20251215
  Transmission Date: 20260118
  Serious: Yes (Life-Threatening, Hospitalization, Other)
  Sender: ELI LILLY AND COMPANY
  Company Number: EU-ELI_LILLY_AND_COMPANY-NL202511000531

PATIENT
  Age: 65 Year
  Sex: Male
  Weight: 130 kg

DRUGS (2)
  1. MOUNJARO [Suspect]
     Active Substance: TIRZEPATIDE
     Indication: Type 2 diabetes mellitus
     Dosage: 2.5 MG, UNKNOWN
     Route: 065
     Dates: start: 20250825
  2. MOUNJARO [Suspect]
     Active Substance: TIRZEPATIDE
     Indication: Type 2 diabetes mellitus
     Dosage: 5 MG, UNKNOWN
     Route: 065

REACTIONS (6)
  - Cardiac failure [Recovering/Resolving]
  - Ventricular tachycardia [Recovering/Resolving]
  - Cardiac arrest [Recovered/Resolved]
  - Arrhythmia [Recovered/Resolved]
  - Back pain [Recovering/Resolving]
  - Renal pain [Recovering/Resolving]

NARRATIVE: CASE EVENT DATE: 20251027
